FAERS Safety Report 10534186 (Version 1)
Quarter: 2014Q4

REPORT INFORMATION
  Report Type: Spontaneous
  Country: US (occurrence: None)
  Receive Date: 20141020
  Receipt Date: 20141020
  Transmission Date: 20150529
  Serious: Yes (Life-Threatening)
  Sender: FDA-Public Use
  Company Number: US-MDCO-14-00259

PATIENT
  Age: 63 Year
  Sex: Male

DRUGS (2)
  1. BRILINTA [Concomitant]
     Active Substance: TICAGRELOR
  2. ANGIOMAX [Suspect]
     Active Substance: BIVALIRUDIN
     Indication: PERCUTANEOUS CORONARY INTERVENTION
     Route: 042

REACTIONS (4)
  - Thrombosis [None]
  - Device dislocation [None]
  - Drug dose omission [None]
  - Hypotension [None]
